FAERS Safety Report 4586805-5 (Version None)
Quarter: 2005Q1

REPORT INFORMATION
  Report Type: 
  Country: None (occurrence: None)
  Receive Date: 20050218
  Receipt Date: 20050204
  Transmission Date: 20050727
  Serious: Yes (Other)
  Sender: FDA-Public Use
  Company Number: 200510457JP

PATIENT
  Age: 56 Year
  Sex: Female

DRUGS (6)
  1. KETEK [Suspect]
     Indication: NASOPHARYNGITIS
     Route: 048
     Dates: start: 20050202, end: 20050202
  2. MEDICON [Concomitant]
     Indication: COUGH
     Route: 048
     Dates: start: 20050202, end: 20050202
  3. NICHOLASE [Concomitant]
     Indication: PRODUCTIVE COUGH
     Route: 048
     Dates: start: 20050202, end: 20050202
  4. NAROSTIN [Concomitant]
     Indication: PAIN
     Route: 048
     Dates: start: 20050202, end: 20050202
  5. NAROSTIN [Concomitant]
     Indication: PYREXIA
     Route: 048
     Dates: start: 20050202, end: 20050202
  6. CEFTAC [Concomitant]
     Indication: GASTRITIS
     Route: 048
     Dates: start: 20050202, end: 20050202

REACTIONS (10)
  - ABASIA [None]
  - BLOOD PRESSURE SYSTOLIC DECREASED [None]
  - COLD SWEAT [None]
  - FEELING ABNORMAL [None]
  - HYPOAESTHESIA [None]
  - HYPOTENSION [None]
  - MUSCULOSKELETAL STIFFNESS [None]
  - PALLOR [None]
  - SYNCOPE VASOVAGAL [None]
  - THYROXINE FREE DECREASED [None]
